FAERS Safety Report 6929722-5 (Version None)
Quarter: 2010Q3

REPORT INFORMATION
  Report Type: 
  Country: None (occurrence: None)
  Receive Date: 20100818
  Receipt Date: 20100809
  Transmission Date: 20110219
  Serious: Yes (Death, Hospitalization)
  Sender: FDA-Public Use
  Company Number: US-BRACCO-005033

PATIENT
  Age: 72 Year
  Sex: Female

DRUGS (2)
  1. ISOVUE-128 [Suspect]
     Indication: INVESTIGATION
     Route: 042
     Dates: start: 20100728, end: 20100728
  2. ISOVUE-128 [Suspect]
     Indication: COMPUTERISED TOMOGRAM ABDOMEN
     Route: 042
     Dates: start: 20100728, end: 20100728

REACTIONS (2)
  - DYSPNOEA [None]
  - LOSS OF CONSCIOUSNESS [None]
